FAERS Safety Report 20378929 (Version 2)
Quarter: 2022Q1

REPORT INFORMATION
  Report Type: Other
  Country: DE (occurrence: DE)
  Receive Date: 20220126
  Receipt Date: 20220208
  Transmission Date: 20220423
  Serious: Yes (Other)
  Sender: FDA-Public Use
  Company Number: DE-CELLTRION INC.-2022DE000541

PATIENT

DRUGS (4)
  1. TRASTUZUMAB [Suspect]
     Active Substance: TRASTUZUMAB
     Indication: Breast cancer
     Dosage: 3 CYCLES NEOADJUVANT
     Route: 041
  2. TRASTUZUMAB [Suspect]
     Active Substance: TRASTUZUMAB
     Dosage: 2 CYCLES ADJUVANT
     Route: 041
  3. PERTUZUMAB [Suspect]
     Active Substance: PERTUZUMAB
     Indication: Breast cancer
     Dosage: 2 CYCLES ADJUVANT
     Route: 065
  4. PERTUZUMAB [Suspect]
     Active Substance: PERTUZUMAB
     Dosage: 3 CYCLES NEOADJUVANT
     Route: 065

REACTIONS (3)
  - Cardiac failure [Not Recovered/Not Resolved]
  - Head titubation [Not Recovered/Not Resolved]
  - Diarrhoea [Not Recovered/Not Resolved]
